FAERS Safety Report 7544206-1 (Version None)
Quarter: 2011Q2

REPORT INFORMATION
  Report Type: 
  Country: None (occurrence: None)
  Receive Date: 20110613
  Receipt Date: 20060901
  Transmission Date: 20111010
  Serious: Yes (Hospitalization, Other)
  Sender: FDA-Public Use
  Company Number: PHNR2006AU01130

PATIENT
  Sex: Male

DRUGS (3)
  1. CLOZAPINE [Suspect]
     Dosage: 400MG FOR A SINGLE DAY
  2. CLOZAPINE [Suspect]
     Dosage: 12-600MG DAILY
     Dates: start: 19950525
  3. CLOZAPINE [Suspect]
     Dosage: 12.5MG INITIATION DOSE

REACTIONS (1)
  - COLONIC PSEUDO-OBSTRUCTION [None]
